FAERS Safety Report 8767279 (Version 2)
Quarter: 2012Q4

REPORT INFORMATION
  Report Type: 
  Country: AT (occurrence: AT)
  Receive Date: 20120904
  Receipt Date: 20120907
  Transmission Date: 20130627
  Serious: Yes (Hospitalization)
  Sender: FDA-Public Use
  Company Number: AT-GLAXOSMITHKLINE-B0826875A

PATIENT
  Sex: Female
  Weight: 55 kg

DRUGS (1)
  1. PAZOPANIB [Suspect]
     Indication: SARCOMA
     Dosage: 800MG per day
     Route: 048
     Dates: start: 20120725

REACTIONS (1)
  - Blood creatinine increased [Recovered/Resolved]
